FAERS Safety Report 10206020 (Version 1)
Quarter: 2014Q2

REPORT INFORMATION
  Report Type: Spontaneous
  Country: US (occurrence: None)
  Receive Date: 20140527
  Receipt Date: 20140527
  Transmission Date: 20141212
  Serious: Yes (Hospitalization)
  Sender: FDA-Public Use
  Company Number: None

PATIENT
  Age: 78 Year
  Sex: Male
  Weight: 93.6 kg

DRUGS (2)
  1. WARFARIN [Suspect]
     Indication: ATRIAL FIBRILLATION
     Route: 048
     Dates: start: 20140123, end: 20140210
  2. ENOXAPARIN [Suspect]
     Indication: ATRIAL FIBRILLATION
     Dates: start: 20140128, end: 20140210

REACTIONS (2)
  - Gastrointestinal carcinoma [None]
  - Haemorrhage [None]
